FAERS Safety Report 23895930 (Version 1)
Quarter: 2024Q2

REPORT INFORMATION
  Report Type: Spontaneous
  Country: US (occurrence: None)
  Receive Date: 20240523
  Receipt Date: 20240523
  Transmission Date: 20240715
  Serious: No
  Sender: FDA-Public Use
  Company Number: None

PATIENT

DRUGS (2)
  1. AMLODIPINE BESYLATE\BENAZEPRIL HYDROCHLORIDE [Suspect]
     Active Substance: AMLODIPINE BESYLATE\BENAZEPRIL HYDROCHLORIDE
  2. AMLODIPINE\OLMESARTAN [Suspect]
     Active Substance: AMLODIPINE\OLMESARTAN

REACTIONS (5)
  - Transcription medication error [None]
  - Product dispensing error [None]
  - Wrong product administered [None]
  - Product name confusion [None]
  - Product name confusion [None]
